FAERS Safety Report 7581007-2 (Version None)
Quarter: 2011Q2

REPORT INFORMATION
  Report Type: 
  Country: None (occurrence: None)
  Receive Date: 20110622
  Receipt Date: 20110617
  Transmission Date: 20111010
  Serious: Yes (Death, Other)
  Sender: FDA-Public Use
  Company Number: 2011-1161

PATIENT

DRUGS (1)
  1. APO-GO AMPOULES (APO-GO) (APOORPHINE HYDROCHLORIDE) (APOMORPHINE HYDRO [Suspect]
     Indication: PARKINSON'S DISEASE
     Dosage: SEE IMAGE
     Route: 058

REACTIONS (4)
  - DELUSION [None]
  - IMPULSE-CONTROL DISORDER [None]
  - AGGRESSION [None]
  - PSYCHOTIC DISORDER [None]
